FAERS Safety Report 14701437 (Version 2)
Quarter: 2018Q2

REPORT INFORMATION
  Report Type: Spontaneous
  Country: US (occurrence: US)
  Receive Date: 20180330
  Receipt Date: 20180425
  Transmission Date: 20180711
  Serious: No
  Sender: FDA-Public Use
  Company Number: US-PFIZER INC-2018130958

PATIENT
  Age: 51 Year
  Sex: Female

DRUGS (5)
  1. CENTRUM [Concomitant]
     Active Substance: VITAMINS
     Dosage: UNK
     Dates: start: 2010
  2. BABY ASPIRIN [Concomitant]
     Active Substance: ASPIRIN
     Dosage: UNK
     Dates: start: 201610
  3. ATORVASTATIN [Concomitant]
     Active Substance: ATORVASTATIN
     Dosage: 10 MG, UNK
     Dates: start: 201610
  4. PREMARIN [Suspect]
     Active Substance: ESTROGENS, CONJUGATED
     Indication: VULVOVAGINAL DRYNESS
     Dosage: 1/3 OF AN APPLICATOR ON VAG. 1/WEEK FOR 1 WK THEN TWICE WEEKLY
     Route: 067
     Dates: start: 20180201, end: 20180315
  5. VITAMIN C [Concomitant]
     Active Substance: ASCORBIC ACID
     Dosage: UNK
     Dates: start: 201601

REACTIONS (7)
  - Palpitations [Unknown]
  - Muscle spasms [Recovered/Resolved]
  - Malaise [Unknown]
  - Drug ineffective [Unknown]
  - Headache [Recovered/Resolved]
  - Abdominal pain [Unknown]
  - Abdominal pain upper [Recovered/Resolved]

NARRATIVE: CASE EVENT DATE: 20180201
